FAERS Safety Report 5140412-4 (Version None)
Quarter: 2006Q4

REPORT INFORMATION
  Report Type: 
  Country: None (occurrence: None)
  Receive Date: 20061024
  Receipt Date: 20061005
  Transmission Date: 20070319
  Serious: Yes (Life-Threatening, Other)
  Sender: FDA-Public Use
  Company Number: GB200609001669

PATIENT
  Age: 64 Year
  Sex: Male
  Weight: 89 kg

DRUGS (15)
  1. XIGRIS [Suspect]
     Indication: SEPSIS
     Dosage: 24 UG, EVERY HOUR
     Dates: start: 20060827, end: 20060830
  2. HEPARIN [Concomitant]
  3. FENTANYL CITRATE [Concomitant]
  4. VECURONIUM BROMIDE [Concomitant]
  5. SALBUTAMOL [Concomitant]
  6. ERYTHROMYCIN [Concomitant]
  7. AUGMENTIN/SCH/(AMOXICILLIN, CLAVULANATE POTASSIUM) [Concomitant]
  8. ENOXAPARIN SODIUM [Concomitant]
  9. HYDROCORTISONE [Concomitant]
  10. OMEPRAZOLE [Concomitant]
  11. AMINOPHYLLINE [Concomitant]
  12. FUROSEMIDE [Concomitant]
  13. VANCOMYCIN [Concomitant]
  14. PIPERACILLIN SODIUM AND TAZOBACTAM SODIUM [Concomitant]
  15. PROPOFOL [Concomitant]

REACTIONS (3)
  - COAGULOPATHY [None]
  - HAEMORRHAGE INTRACRANIAL [None]
  - THROMBOCYTOPENIA [None]
